FAERS Safety Report 9085156 (Version 1)
Quarter: 2013Q1

REPORT INFORMATION
  Report Type: Report from Study
  Country: US (occurrence: US)
  Receive Date: 20130131
  Receipt Date: 20130131
  Transmission Date: 20140127
  Serious: No
  Sender: FDA-Public Use
  Company Number: US-ABBOTT-12P-163-0996308-00

PATIENT
  Sex: Female
  Weight: 65.38 kg

DRUGS (8)
  1. HUMIRA [Suspect]
     Indication: RHEUMATOID ARTHRITIS
     Dates: start: 201208
  2. METHOTREXATE [Suspect]
     Indication: RHEUMATOID ARTHRITIS
     Dosage: SIX TABLETS A DAY
  3. METHOTREXATE [Suspect]
     Dosage: FOUR TABLETS PER DAY
  4. FOLIC ACID [Concomitant]
     Indication: PRODUCT USED FOR UNKNOWN INDICATION
  5. PAIN MEDICATION [Concomitant]
     Indication: PAIN
  6. MELAXICAM [Concomitant]
     Indication: PRODUCT USED FOR UNKNOWN INDICATION
  7. AMBIEN [Concomitant]
     Indication: INSOMNIA
  8. ANTIDEPRESSANT [Concomitant]
     Indication: DEPRESSION

REACTIONS (8)
  - Muscle spasms [Unknown]
  - Burning sensation [Not Recovered/Not Resolved]
  - Hypoaesthesia [Not Recovered/Not Resolved]
  - Burning sensation [Not Recovered/Not Resolved]
  - Pain [Not Recovered/Not Resolved]
  - Insomnia [Unknown]
  - Stomatitis [Recovering/Resolving]
  - Muscle spasms [Not Recovered/Not Resolved]
